FAERS Safety Report 7734599-4 (Version None)
Quarter: 2011Q3

REPORT INFORMATION
  Report Type: 
  Country: None (occurrence: None)
  Receive Date: 20110907
  Receipt Date: 20110905
  Transmission Date: 20111222
  Serious: Yes (Death, Hospitalization)
  Sender: FDA-Public Use
  Company Number: JP-PFIZER INC-2010043130

PATIENT
  Age: 68 Year
  Sex: Female
  Weight: 147 kg

DRUGS (16)
  1. RIFABUTIN [Suspect]
     Indication: MYCOBACTERIUM AVIUM COMPLEX INFECTION
     Dosage: 150 MG, 1X/DAY
     Route: 048
     Dates: start: 20091208
  2. VANCOMYCIN [Concomitant]
     Dosage: 1000 MG, 2X/DAY
     Route: 042
     Dates: end: 20091214
  3. LASIX [Concomitant]
     Dosage: 20 MG, 2X/DAY
     Route: 042
     Dates: start: 20100226, end: 20100305
  4. LASIX [Concomitant]
     Indication: RIGHT VENTRICULAR FAILURE
     Dosage: 15 MG, 2X/DAY
     Route: 042
     Dates: end: 20091217
  5. STREPTOMYCIN SULFATE [Concomitant]
     Indication: MYCOBACTERIUM AVIUM COMPLEX INFECTION
     Dosage: 0.5 G, 2X/WEEK
     Route: 030
     Dates: start: 20091203, end: 20100305
  6. NORVASC [Concomitant]
     Indication: HYPERTENSION
     Dosage: 2.5 MG, 1X/DAY
     Route: 048
     Dates: start: 20091203, end: 20100305
  7. OMEPRAZOLE [Concomitant]
     Dosage: 10 MG, 1X/DAY
     Route: 048
     Dates: end: 20091217
  8. CLARITHROMYCIN [Concomitant]
     Indication: MYCOBACTERIUM AVIUM COMPLEX INFECTION
     Dosage: 400 MG, 2X/DAY
     Route: 048
     Dates: start: 20050730, end: 20100305
  9. SPIRIVA [Concomitant]
     Indication: RESPIRATORY FAILURE
     Dosage: 18 UG, 1X/DAY
     Dates: start: 20070621, end: 20100305
  10. METHYCOBAL [Concomitant]
     Indication: HYPOVITAMINOSIS
     Dosage: 500 UG, 3X/DAY
     Route: 048
     Dates: start: 20070315, end: 20100325
  11. ETHAMBUTOL HYDROCHLORIDE [Concomitant]
     Indication: MYCOBACTERIUM AVIUM COMPLEX INFECTION
     Dosage: 750 MG, 1X/DAY
     Route: 048
     Dates: start: 20061026, end: 20100305
  12. ISOSORBIDE DINITRATE [Concomitant]
     Indication: RIGHT VENTRICULAR FAILURE
     Dosage: 40 MG, 1X/DAY
     Route: 062
     Dates: start: 20091125, end: 20100305
  13. ALDACTONE [Concomitant]
     Indication: RIGHT VENTRICULAR FAILURE
     Dosage: 25 MG, 1X/DAY
     Route: 048
     Dates: start: 20091218, end: 20100305
  14. PAZUCROSS [Concomitant]
     Dosage: 500 MG, 2X/DAY
     Route: 042
     Dates: end: 20091220
  15. LEVOFLOXACIN [Concomitant]
     Indication: MYCOBACTERIUM AVIUM COMPLEX INFECTION
     Dosage: 200 MG, 3X/DAY
     Route: 048
     Dates: start: 20070301, end: 20100305
  16. PULMICORT [Concomitant]
     Indication: RESPIRATORY FAILURE
     Dosage: 200 UG, 2X/DAY
     Dates: start: 20070725, end: 20100305

REACTIONS (1)
  - RESPIRATORY FAILURE [None]
